FAERS Safety Report 6667615-1 (Version None)
Quarter: 2010Q1

REPORT INFORMATION
  Report Type: 
  Country: None (occurrence: None)
  Receive Date: 20100331
  Receipt Date: 20100317
  Transmission Date: 20100710
  Serious: Yes (Hospitalization)
  Sender: FDA-Public Use
  Company Number: PAR_02967_2009

PATIENT
  Age: 57 Year
  Sex: Male

DRUGS (9)
  1. IBUPROFEN [Suspect]
     Indication: PAIN
     Dosage: DF, ORAL
     Route: 048
  2. RIVAROXABAN [Suspect]
     Indication: DEEP VEIN THROMBOSIS
     Dosage: 40 MG, ORAL
     Route: 048
     Dates: start: 20090423, end: 20090428
  3. RIVAROXABAN [Suspect]
     Indication: PULMONARY EMBOLISM
     Dosage: 40 MG, ORAL
     Route: 048
     Dates: start: 20090423, end: 20090428
  4. CITROL (CITROLPRAM HYDROBROMIDE) [Concomitant]
  5. FUROSEMIDE [Concomitant]
  6. VALSARTAN [Concomitant]
  7. HYDROXYUREA [Concomitant]
  8. PANTOPRAZOLE SODIUM [Concomitant]
  9. ACETAMINOPHEN [Concomitant]

REACTIONS (2)
  - DRUG INTERACTION [None]
  - SPONTANEOUS HAEMATOMA [None]
